FAERS Safety Report 4309909-0 (Version None)
Quarter: 2004Q1

REPORT INFORMATION
  Report Type: 
  Country: None (occurrence: None)
  Receive Date: 20040303
  Receipt Date: 20040123
  Transmission Date: 20041129
  Serious: Yes (Other)
  Sender: FDA-Public Use
  Company Number: US-BRISTOL-MYERS SQUIBB COMPANY-12486007

PATIENT
  Age: 16 Year
  Sex: Male

DRUGS (4)
  1. ABILIFY [Suspect]
     Indication: MANIA
     Route: 048
  2. ABILIFY [Suspect]
     Indication: BIPOLAR DISORDER
     Route: 048
  3. ABILIFY [Suspect]
     Indication: SEDATION
     Route: 048
  4. SEROQUEL [Concomitant]
     Dosage: DOSE TITRATED DOWN THEN DISCONTINUED

REACTIONS (1)
  - PRIAPISM [None]
